FAERS Safety Report 18112888 (Version 1)
Quarter: 2020Q3

REPORT INFORMATION
  Report Type: Spontaneous
  Country: US (occurrence: US)
  Receive Date: 20200804
  Receipt Date: 20200804
  Transmission Date: 20201103
  Serious: Yes (Hospitalization)
  Sender: FDA-Public Use
  Company Number: None

PATIENT
  Sex: Male

DRUGS (68)
  1. ADDERALL XR [Concomitant]
     Active Substance: AMPHETAMINE ASPARTATE\AMPHETAMINE SULFATE\DEXTROAMPHETAMINE SACCHARATE\DEXTROAMPHETAMINE SULFATE
  2. ANDROGEL [Concomitant]
     Active Substance: TESTOSTERONE
  3. CLARITHROMYC [Concomitant]
  4. HYDROCO/APAP [Concomitant]
     Active Substance: ACETAMINOPHEN\HYDROCODONE
  5. NORVASC [Concomitant]
     Active Substance: AMLODIPINE BESYLATE
  6. PROZAC [Concomitant]
     Active Substance: FLUOXETINE HYDROCHLORIDE
  7. DEXTROAMPHET SACCHARAT, AMPHET ASPARTATE, DEXTROAMPHET SULFATE AND AMPHET SULFAT [Concomitant]
     Active Substance: AMPHETAMINE ASPARTATE\AMPHETAMINE SULFATE\DEXTROAMPHETAMINE SACCHARATE\DEXTROAMPHETAMINE SULFATE
  8. CIALIS [Concomitant]
     Active Substance: TADALAFIL
  9. CITALOPRAM [Concomitant]
     Active Substance: CITALOPRAM HYDROBROMIDE
  10. LYRICA [Concomitant]
     Active Substance: PREGABALIN
  11. NUVIGIL [Concomitant]
     Active Substance: ARMODAFINIL
  12. AMITRIPTLYN [Concomitant]
  13. AVONEX [Concomitant]
     Active Substance: INTERFERON BETA-1A
  14. BIOTIN [Concomitant]
     Active Substance: BIOTIN
  15. BUPROPN HCL [Concomitant]
     Active Substance: BUPROPION HYDROCHLORIDE
  16. DILAUDID [Concomitant]
     Active Substance: HYDROMORPHONE HYDROCHLORIDE
  17. FLUICASONE [Concomitant]
  18. KETOROLAC [Concomitant]
     Active Substance: KETOROLAC TROMETHAMINE
  19. LEVAQUIN [Concomitant]
     Active Substance: LEVOFLOXACIN
  20. NITROFURANTIN [Concomitant]
     Active Substance: NITROFURANTOIN
  21. PROBIOTIC [Concomitant]
     Active Substance: PROBIOTICS NOS
  22. PROVIGIL [Concomitant]
     Active Substance: MODAFINIL
  23. TYLENOL [Concomitant]
     Active Substance: ACETAMINOPHEN
  24. BACLOFEN. [Concomitant]
     Active Substance: BACLOFEN
  25. BOTOX COSMET [Concomitant]
  26. EMBEDA [Concomitant]
     Active Substance: MORPHINE SULFATE\NALTREXONE HYDROCHLORIDE
  27. METHYLPRED [Concomitant]
     Active Substance: METHYLPREDNISOLONE
  28. MULTIVITAMIN [Concomitant]
     Active Substance: VITAMINS
  29. NORCO [Concomitant]
     Active Substance: ACETAMINOPHEN\HYDROCODONE BITARTRATE
  30. TESTOST CYP [Concomitant]
     Active Substance: TESTOSTERONE CYPIONATE
  31. TESTOSTERONE POW [Concomitant]
  32. VITAMIN D [Concomitant]
     Active Substance: VITAMIN D NOS
  33. ADDERALL [Concomitant]
     Active Substance: AMPHETAMINE ASPARTATE\AMPHETAMINE SULFATE\DEXTROAMPHETAMINE SACCHARATE\DEXTROAMPHETAMINE SULFATE
  34. AMPHETANINE ER [Concomitant]
  35. CEPHALEXIN. [Concomitant]
     Active Substance: CEPHALEXIN
  36. CLONAZEPAM. [Concomitant]
     Active Substance: CLONAZEPAM
  37. CLONIDINE. [Concomitant]
     Active Substance: CLONIDINE
  38. DHEA [Concomitant]
     Active Substance: PRASTERONE
  39. FISH OIL [Concomitant]
     Active Substance: FISH OIL
  40. TIZANIDINE. [Concomitant]
     Active Substance: TIZANIDINE
  41. DALFAMPRIDINE 10MG ER TAB [Suspect]
     Active Substance: DALFAMPRIDINE
     Indication: MULTIPLE SCLEROSIS
     Route: 048
     Dates: start: 20150211
  42. AMANTADINE. [Concomitant]
     Active Substance: AMANTADINE HYDROCHLORIDE
  43. BOTOX [Concomitant]
     Active Substance: ONABOTULINUMTOXINA
  44. CELECOXIB. [Concomitant]
     Active Substance: CELECOXIB
  45. CIPROFLOXACN [Concomitant]
     Active Substance: CIPROFLOXACIN
  46. CLINDAMYCIN. [Concomitant]
     Active Substance: CLINDAMYCIN
  47. GARLIC OIL [Concomitant]
     Active Substance: GARLIC OIL
  48. MODAFINL [Concomitant]
  49. PREDNISONE. [Concomitant]
     Active Substance: PREDNISONE
  50. ROPINIROLE. [Concomitant]
     Active Substance: ROPINIROLE
  51. VIAGRA [Concomitant]
     Active Substance: SILDENAFIL CITRATE
  52. AMITIZA [Concomitant]
     Active Substance: LUBIPROSTONE
  53. GINGER ROOT [Concomitant]
     Active Substance: GINGER
  54. MIRALAX [Concomitant]
     Active Substance: POLYETHYLENE GLYCOL 3350
  55. PREGABALIN. [Concomitant]
     Active Substance: PREGABALIN
  56. REBIF [Concomitant]
     Active Substance: INTERFERON BETA-1A
  57. RITUXAN [Concomitant]
     Active Substance: RITUXIMAB
  58. AMPHENTANINE [Concomitant]
  59. AZITHROMYCIN ANHYDROUS. [Concomitant]
     Active Substance: AZITHROMYCIN ANHYDROUS
  60. BELCUVA MIS [Concomitant]
  61. CHLORPHEX GLU [Concomitant]
  62. CYMBALTA [Concomitant]
     Active Substance: DULOXETINE HYDROCHLORIDE
  63. DULOXETINE. [Concomitant]
     Active Substance: DULOXETINE
  64. LETROZOLE. [Concomitant]
     Active Substance: LETROZOLE
  65. OMEPRAZOLE. [Concomitant]
     Active Substance: OMEPRAZOLE
  66. THERAPEUTIC [Concomitant]
     Active Substance: COAL TAR
  67. TRAZOSONE [Concomitant]
  68. TUSSIONEX PENNKINETIC [Concomitant]
     Active Substance: CHLORPHENIRAMINE\HYDROCODONE

REACTIONS (2)
  - Disease recurrence [None]
  - Therapy interrupted [None]
